FAERS Safety Report 6435867-9 (Version None)
Quarter: 2009Q4

REPORT INFORMATION
  Report Type: 
  Country: None (occurrence: None)
  Receive Date: 20091111
  Receipt Date: 20091103
  Transmission Date: 20100525
  Serious: Yes (Hospitalization, Other)
  Sender: FDA-Public Use
  Company Number: BE-JNJFOC-20091100795

PATIENT
  Sex: Male
  Weight: 82 kg

DRUGS (4)
  1. REMICADE [Suspect]
     Indication: COLITIS ULCERATIVE
     Route: 042
  2. PENTASA [Concomitant]
     Indication: COLITIS ULCERATIVE
     Route: 048
  3. MEDROL [Concomitant]
     Route: 048
  4. MEDROL [Concomitant]
     Indication: COLITIS ULCERATIVE
     Route: 048

REACTIONS (8)
  - CANDIDA SEPSIS [None]
  - CLOSTRIDIUM DIFFICILE COLITIS [None]
  - COLITIS ULCERATIVE [None]
  - DEVICE RELATED INFECTION [None]
  - DRUG INEFFECTIVE [None]
  - EYE INFECTION FUNGAL [None]
  - PNEUMONIA BACTERIAL [None]
  - PNEUMONIA ESCHERICHIA [None]
